FAERS Safety Report 10036479 (Version 1)
Quarter: 2014Q1

REPORT INFORMATION
  Report Type: Spontaneous
  Country: CA (occurrence: CA)
  Receive Date: 20140326
  Receipt Date: 20140326
  Transmission Date: 20141002
  Serious: Yes (Hospitalization, Other)
  Sender: FDA-Public Use
  Company Number: CA-ROCHE-1367525

PATIENT
  Age: 52 Year
  Sex: Female

DRUGS (4)
  1. RITUXAN [Suspect]
     Indication: IMMUNE THROMBOCYTOPENIC PURPURA
     Route: 042
     Dates: start: 2012
  2. PREDNISONE [Suspect]
     Indication: PLATELET COUNT DECREASED
     Route: 048
     Dates: start: 201401
  3. ALTACE [Concomitant]
     Dosage: STARTED 7 YRS OR MORE AGO
     Route: 065
  4. PREMARIN [Concomitant]
     Dosage: STARTED }25 YRS AGO
     Route: 065

REACTIONS (4)
  - Platelet count decreased [Unknown]
  - Basedow^s disease [Unknown]
  - Weight increased [Not Recovered/Not Resolved]
  - Off label use [Unknown]
